FAERS Safety Report 19278742 (Version 1)
Quarter: 2021Q2

REPORT INFORMATION
  Report Type: Spontaneous
  Country: US (occurrence: US)
  Receive Date: 20210520
  Receipt Date: 20210520
  Transmission Date: 20210717
  Serious: No
  Sender: FDA-Public Use
  Company Number: US-BIOGEN-2021BI01002628

PATIENT
  Age: 57 Year
  Sex: Female

DRUGS (2)
  1. VUMERITY [Suspect]
     Active Substance: DIROXIMEL FUMARATE
     Indication: MULTIPLE SCLEROSIS
     Dosage: STARTING DOSE
     Route: 048
     Dates: start: 20210413, end: 20210419
  2. VUMERITY [Suspect]
     Active Substance: DIROXIMEL FUMARATE
     Route: 048
     Dates: start: 20210420, end: 20210501

REACTIONS (7)
  - Headache [Recovered/Resolved]
  - Gastric disorder [Recovered/Resolved]
  - Flushing [Recovered/Resolved]
  - Gastrointestinal disorder [Unknown]
  - Abdominal discomfort [Recovered/Resolved]
  - Abdominal pain upper [Recovered/Resolved]
  - Pruritus [Recovered/Resolved]

NARRATIVE: CASE EVENT DATE: 202104
